FAERS Safety Report 17040396 (Version 1)
Quarter: 2019Q4

REPORT INFORMATION
  Report Type: Spontaneous
  Country: US (occurrence: US)
  Receive Date: 20191117
  Receipt Date: 20191117
  Transmission Date: 20200122
  Serious: No
  Sender: FDA-Public Use
  Company Number: US-TORRENT-00009216

PATIENT
  Age: 57 Year
  Sex: Female
  Weight: 58 kg

DRUGS (2)
  1. AMLODIPINE [Concomitant]
     Active Substance: AMLODIPINE BESYLATE
     Indication: PRODUCT USED FOR UNKNOWN INDICATION
     Dosage: UNKNOWN
  2. LOSARTAN POTASSIUM. [Suspect]
     Active Substance: LOSARTAN POTASSIUM
     Indication: HYPERTENSION
     Dosage: UNKNOWN
     Route: 048

REACTIONS (8)
  - Anxiety [Unknown]
  - Back pain [Unknown]
  - Bone pain [Unknown]
  - Rash [Unknown]
  - Fatigue [Unknown]
  - Loss of personal independence in daily activities [Unknown]
  - Depression [Unknown]
  - Erythema [Unknown]

NARRATIVE: CASE EVENT DATE: 20190713
